FAERS Safety Report 21258966 (Version 1)
Quarter: 2022Q3

REPORT INFORMATION
  Report Type: Spontaneous
  Country: DK (occurrence: None)
  Receive Date: 20220826
  Receipt Date: 20220826
  Transmission Date: 20221027
  Serious: Yes (Other)
  Sender: FDA-Public Use
  Company Number: 2022A291299

PATIENT
  Age: 70 Year
  Sex: Female
  Weight: 96 kg

DRUGS (1)
  1. QUETIAPINE [Suspect]
     Active Substance: QUETIAPINE
     Indication: Depression
     Dosage: DOSAGE: 25 MG MAXIMUM 3 TIMES A DAY. STRENGTH: 25 MG
     Route: 065
     Dates: start: 20210516, end: 20210606

REACTIONS (2)
  - Dysuria [Recovering/Resolving]
  - Urinary retention [Not Recovered/Not Resolved]

NARRATIVE: CASE EVENT DATE: 20210516
